FAERS Safety Report 6888026-X (Version None)
Quarter: 2010Q3

REPORT INFORMATION
  Report Type: 
  Country: None (occurrence: None)
  Receive Date: 20100730
  Receipt Date: 20100728
  Transmission Date: 20110219
  Serious: Yes (Other)
  Sender: FDA-Public Use
  Company Number: B0666164A

PATIENT
  Age: 72 Year
  Sex: Male
  Weight: 110 kg

DRUGS (4)
  1. AVANDIA [Suspect]
     Dosage: 4MG TWICE PER DAY
     Route: 048
     Dates: start: 20050101, end: 20100727
  2. METFORMIN HCL [Concomitant]
  3. NEBIVOLOL HCL [Concomitant]
  4. NEBIVOLOL HCL [Concomitant]

REACTIONS (6)
  - CORNEAL OPACITY [None]
  - MACULAR OEDEMA [None]
  - OEDEMA PERIPHERAL [None]
  - VISION BLURRED [None]
  - VISUAL ACUITY REDUCED [None]
  - WEIGHT INCREASED [None]
